FAERS Safety Report 8587938 (Version 2)
Quarter: 2012Q4

REPORT INFORMATION
  Report Type: 
  Country: US (occurrence: US)
  Receive Date: 20120531
  Receipt Date: 20121226
  Transmission Date: 20130627
  Serious: Yes (Other)
  Sender: FDA-Public Use
  Company Number: US-ASTRAZENECA-2012SE33146

PATIENT
  Age: 61 Year
  Sex: Male
  Weight: 140.2 kg

DRUGS (19)
  1. NEXIUM [Suspect]
     Route: 048
  2. METOPROLOL TARTRATE [Suspect]
     Route: 048
     Dates: start: 20121129
  3. SIMVASTATIN [Concomitant]
     Route: 048
  4. PRISTIQ [Concomitant]
     Route: 048
  5. NEURONTIN [Concomitant]
     Route: 048
  6. METFORMIN HCL [Concomitant]
     Route: 048
  7. GLIPIZIDE [Concomitant]
     Route: 048
  8. DIGOXIN [Concomitant]
     Route: 048
  9. COUMADIN [Concomitant]
     Route: 048
  10. KLOR-CON [Concomitant]
     Route: 048
  11. LASIX [Concomitant]
     Route: 048
  12. LASIX [Concomitant]
     Route: 048
     Dates: start: 20121129
  13. BUPROPION HCL [Concomitant]
     Route: 048
  14. TAMSULOSIN HCL [Concomitant]
     Route: 048
  15. MUCINEX [Concomitant]
     Route: 048
  16. OXAPROZIN [Concomitant]
     Route: 048
  17. POTASSIUM CHLORIDE [Concomitant]
     Route: 048
  18. POTASSIUM CHLORIDE [Concomitant]
     Route: 048
     Dates: start: 20121129
  19. ASPIRIN [Concomitant]
     Route: 048

REACTIONS (11)
  - Atrial fibrillation [Unknown]
  - Cardiac failure congestive [Unknown]
  - Hypertension [Unknown]
  - Benign prostatic hyperplasia [Unknown]
  - Affective disorder [Unknown]
  - Arteriosclerosis coronary artery [Unknown]
  - Malaise [Unknown]
  - Productive cough [Unknown]
  - Dyspnoea paroxysmal nocturnal [Unknown]
  - Chest pain [Unknown]
  - Dyspnoea [Unknown]
